FAERS Safety Report 17376238 (Version 1)
Quarter: 2020Q1

REPORT INFORMATION
  Report Type: Spontaneous
  Country: US (occurrence: US)
  Receive Date: 20200206
  Receipt Date: 20200206
  Transmission Date: 20200409
  Serious: Yes (Death, Hospitalization)
  Sender: FDA-Public Use
  Company Number: US-ZYDUS-047043

PATIENT
  Age: 35 Year
  Sex: Male

DRUGS (8)
  1. POSACONAZOLE [Concomitant]
     Active Substance: POSACONAZOLE
     Indication: PROPHYLAXIS
     Route: 048
  2. TACROLIMUS. [Concomitant]
     Active Substance: TACROLIMUS
     Indication: CHEMOTHERAPY
  3. LIDOCAINE. [Concomitant]
     Active Substance: LIDOCAINE
     Indication: PRODUCT USED FOR UNKNOWN INDICATION
     Route: 061
  4. TESTOSTERONE/TESTOSTERONE CIPIONATE/TESTOSTERONE CYCLOHEXYL PROPIO/TESTOSTERONE DECANOATE/TESTOSTERO [Concomitant]
     Indication: PRODUCT USED FOR UNKNOWN INDICATION
     Route: 061
  5. NORFLOXACIN [Concomitant]
     Active Substance: NORFLOXACIN
     Indication: PROPHYLAXIS
     Dosage: PREVENTION OF BACTERIAL INFECTIONS DURING THE NEUTROPENIC PHASE
     Route: 065
  6. ASPARAGINASE [Suspect]
     Active Substance: ASPARAGINASE
     Indication: ACUTE LYMPHOCYTIC LEUKAEMIA
     Route: 065
  7. SIROLIMUS. [Suspect]
     Active Substance: SIROLIMUS
     Indication: PROPHYLAXIS
     Route: 048
  8. URSODEOXYCHOLIC ACID [Concomitant]
     Active Substance: URSODIOL
     Indication: PROPHYLAXIS
     Dosage: PREVENTION OF HSCTASSOCIATED HEPATIC COMPLICATION
     Route: 048

REACTIONS (1)
  - Venoocclusive liver disease [Fatal]
